FAERS Safety Report 25558512 (Version 1)
Quarter: 2025Q3

REPORT INFORMATION
  Report Type: Spontaneous
  Country: US (occurrence: US)
  Receive Date: 20250715
  Receipt Date: 20250715
  Transmission Date: 20251020
  Serious: No
  Sender: NOVO NORDISK
  Company Number: US-NOVOPROD-1436456

PATIENT
  Age: 59 Year
  Sex: Male
  Weight: 108.84 kg

DRUGS (5)
  1. OZEMPIC [Suspect]
     Active Substance: SEMAGLUTIDE
     Indication: Diabetes mellitus
  2. BRUKINSA [Suspect]
     Active Substance: ZANUBRUTINIB
     Indication: Chronic lymphocytic leukaemia
     Dosage: 320 MG, QD
     Route: 048
     Dates: end: 202402
  3. BRUKINSA [Suspect]
     Active Substance: ZANUBRUTINIB
     Dosage: 320 MG, QD
     Route: 048
  4. BRUKINSA [Suspect]
     Active Substance: ZANUBRUTINIB
     Dosage: 320 MG, QD
     Route: 048
     Dates: start: 20230329
  5. INSULIN PORK\INSULIN PURIFIED PORK [Concomitant]
     Active Substance: INSULIN PORK\INSULIN PURIFIED PORK
     Indication: Product used for unknown indication

REACTIONS (14)
  - Poor quality sleep [Unknown]
  - COVID-19 [Unknown]
  - Osteoarthritis [Unknown]
  - Splenomegaly [Unknown]
  - Arthralgia [Unknown]
  - Neck pain [Unknown]
  - Rash maculo-papular [Unknown]
  - Eczema [Unknown]
  - Weight decreased [Unknown]
  - Hyperglycaemia [Unknown]
  - Abdominal discomfort [Not Recovered/Not Resolved]
  - Eructation [Not Recovered/Not Resolved]
  - Flatulence [Not Recovered/Not Resolved]
  - Fatigue [Unknown]
